FAERS Safety Report 12316251 (Version 1)
Quarter: 2016Q2

REPORT INFORMATION
  Report Type: Spontaneous
  Country: CA (occurrence: CA)
  Receive Date: 20160428
  Receipt Date: 20160428
  Transmission Date: 20160815
  Serious: Yes (Hospitalization, Other)
  Sender: FDA-Public Use
  Company Number: CA-NOVOPROD-489291

PATIENT
  Age: 63 Year
  Sex: Female

DRUGS (6)
  1. NIASTASE RT [Suspect]
     Active Substance: COAGULATION FACTOR VIIA RECOMBINANT HUMAN
     Dosage: UNK (8.4 MG ONCE WEEK 2)
     Route: 065
  2. NIASTASE RT [Suspect]
     Active Substance: COAGULATION FACTOR VIIA RECOMBINANT HUMAN
     Dosage: UNK (8.4 MG FVIIA Q2H X 5 DOSES)
     Route: 065
  3. NIASTASE RT [Suspect]
     Active Substance: COAGULATION FACTOR VIIA RECOMBINANT HUMAN
     Indication: ACQUIRED HAEMOPHILIA
     Dosage: 90 ?G/KG
     Route: 065
  4. NIASTASE RT [Suspect]
     Active Substance: COAGULATION FACTOR VIIA RECOMBINANT HUMAN
     Indication: HAEMORRHAGE
     Dosage: UNK (8.4 MG FVIIA Q2-3 HOURS TIMES 6 DOSES)
     Route: 065
  5. NIASTASE RT [Suspect]
     Active Substance: COAGULATION FACTOR VIIA RECOMBINANT HUMAN
     Dosage: UNK (8.4 MG FVIIA Q2H X 2 DOSES)
     Route: 065
  6. TINZAPARIN [Suspect]
     Active Substance: TINZAPARIN
     Indication: PRODUCT USED FOR UNKNOWN INDICATION
     Dosage: 175 U/KG
     Route: 065

REACTIONS (2)
  - Venous thrombosis [Recovered/Resolved]
  - Thrombophlebitis superficial [Recovered/Resolved]
